FAERS Safety Report 14838124 (Version 1)
Quarter: 2018Q2

REPORT INFORMATION
  Report Type: Spontaneous
  Country: US (occurrence: US)
  Receive Date: 20180502
  Receipt Date: 20180502
  Transmission Date: 20180711
  Serious: No
  Sender: FDA-Public Use
  Company Number: US-ALKERMES INC.-ALK-2018-002398

PATIENT
  Sex: Female

DRUGS (2)
  1. VIVITROL [Suspect]
     Active Substance: NALTREXONE
     Dosage: 380 MG, QMO
     Route: 030
     Dates: end: 2013
  2. VIVITROL [Suspect]
     Active Substance: NALTREXONE
     Indication: ALCOHOLISM
     Dosage: 380 MG, QMO
     Route: 030
     Dates: start: 20180415

REACTIONS (6)
  - Injection site reaction [Unknown]
  - Injection site discolouration [Unknown]
  - Insomnia [Unknown]
  - Joint swelling [Unknown]
  - Weight increased [Unknown]
  - Injection site induration [Unknown]

NARRATIVE: CASE EVENT DATE: 20180417
